FAERS Safety Report 24333525 (Version 3)
Quarter: 2025Q3

REPORT INFORMATION
  Report Type: Report from Study
  Country: US (occurrence: US)
  Receive Date: 20240918
  Receipt Date: 20250816
  Transmission Date: 20251021
  Serious: No
  Sender: ALEXION PHARMACEUTICALS
  Company Number: US-AstraZeneca-CH-00701460A

PATIENT
  Age: 60 Year
  Sex: Male
  Weight: 147.39 kg

DRUGS (1)
  1. ULTOMIRIS [Suspect]
     Active Substance: RAVULIZUMAB-CWVZ
     Indication: Myasthenia gravis

REACTIONS (8)
  - Fall [Unknown]
  - Back pain [Recovered/Resolved]
  - Lip injury [Unknown]
  - Skin injury [Unknown]
  - Lip haemorrhage [Unknown]
  - Joint swelling [Unknown]
  - Arthralgia [Unknown]
  - Pain [Unknown]

NARRATIVE: CASE EVENT DATE: 20240906
